FAERS Safety Report 25986189 (Version 1)
Quarter: 2025Q4

REPORT INFORMATION
  Report Type: Spontaneous
  Country: US (occurrence: US)
  Receive Date: 20251031
  Receipt Date: 20251031
  Transmission Date: 20260118
  Serious: No
  Sender: AXSOME THERAPEUTICS
  Company Number: US-AXS-AXS202510-001771

PATIENT
  Sex: Male

DRUGS (1)
  1. AUVELITY [Suspect]
     Active Substance: BUPROPION HYDROCHLORIDE\DEXTROMETHORPHAN HYDROBROMIDE
     Indication: Product used for unknown indication
     Route: 048

REACTIONS (4)
  - Coordination abnormal [Unknown]
  - Feeling drunk [Unknown]
  - Impaired driving ability [Unknown]
  - Euphoric mood [Unknown]
